FAERS Safety Report 7205345-8 (Version None)
Quarter: 2010Q4

REPORT INFORMATION
  Report Type: 
  Country: None (occurrence: None)
  Receive Date: 20101231
  Receipt Date: 20101228
  Transmission Date: 20110411
  Serious: No
  Sender: FDA-Public Use
  Company Number: US-PFIZER INC-2010180690

PATIENT
  Sex: Female
  Weight: 54.422 kg

DRUGS (5)
  1. AROMASIN [Suspect]
     Indication: LEUKAEMIA
     Dosage: 25 MG, 1X/DAY
     Route: 048
     Dates: start: 20090801
  2. LEXAPRO [Concomitant]
     Indication: ANXIETY
     Dosage: 10 MG, 1X/DAY
     Route: 048
  3. LEXAPRO [Concomitant]
     Indication: DEPRESSION
  4. ATIVAN [Concomitant]
     Indication: SLEEP DISORDER
     Dosage: 1 MG, 1X/DAY
     Route: 048
  5. ZOLADEX [Concomitant]
     Indication: MENOPAUSE
     Dosage: UNK

REACTIONS (1)
  - ACNE [None]
